FAERS Safety Report 25605912 (Version 2)
Quarter: 2025Q3

REPORT INFORMATION
  Report Type: Spontaneous
  Country: EU (occurrence: EU)
  Receive Date: 20250725
  Receipt Date: 20250729
  Transmission Date: 20251020
  Serious: Yes (Other)
  Sender: MALLINCKRODT
  Company Number: EU-MALLINCKRODT-MNK202504484

PATIENT
  Age: 8 Month
  Sex: Female
  Weight: 6 kg

DRUGS (3)
  1. UVADEX [Suspect]
     Active Substance: METHOXSALEN
     Indication: Acute graft versus host disease in liver
     Dosage: UNKNOWN
     Route: 050
     Dates: start: 20250702
  2. METHOXSALEN [Suspect]
     Active Substance: METHOXSALEN
     Indication: Acute graft versus host disease in liver
     Route: 050
     Dates: start: 20250702
  3. ANTICOAGULANT CITRATE DEXTROSE SOLUTION (ACD) NOS [Concomitant]
     Active Substance: CITRIC ACID MONOHYDRATE\DEXTROSE\SODIUM CITRATE
     Indication: Anticoagulant therapy

REACTIONS (2)
  - Vascular device infection [Not Recovered/Not Resolved]
  - Product use in unapproved indication [Unknown]

NARRATIVE: CASE EVENT DATE: 20250702
